FAERS Safety Report 4949955-7 (Version None)
Quarter: 2006Q1

REPORT INFORMATION
  Report Type: 
  Country: None (occurrence: None)
  Receive Date: 20060127
  Receipt Date: 20050325
  Transmission Date: 20060701
  Serious: Yes (Other)
  Sender: FDA-Public Use
  Company Number: 05-03-0480

PATIENT
  Age: 45 Year
  Sex: Female
  Weight: 95.2554 kg

DRUGS (5)
  1. CLOZAPINE [Suspect]
     Indication: POLYSUBSTANCE ABUSE
     Dosage: 150MG QHS, ORAL; 100MG QAM, ORAL
     Route: 048
     Dates: start: 20021101, end: 20050324
  2. CLOZAPINE [Suspect]
     Indication: SCHIZOAFFECTIVE DISORDER
     Dosage: 150MG QHS, ORAL; 100MG QAM, ORAL
     Route: 048
     Dates: start: 20021101, end: 20050324
  3. LITHIUM CARBONATE [Concomitant]
  4. LOXAPINE [Concomitant]
  5. COGENTIN [Concomitant]

REACTIONS (1)
  - NEUTROPENIA [None]
